FAERS Safety Report 23225378 (Version 2)
Quarter: 2024Q1

REPORT INFORMATION
  Report Type: Spontaneous
  Country: US (occurrence: US)
  Receive Date: 20231124
  Receipt Date: 20240115
  Transmission Date: 20240410
  Serious: No
  Sender: FDA-Public Use
  Company Number: US-OPELLA-2023OHG014350

PATIENT

DRUGS (1)
  1. GOLD BOND ULTIMATE PSORIASIS RELIEF CREAM [Suspect]
     Active Substance: SALICYLIC ACID
     Route: 065

REACTIONS (3)
  - Drug ineffective [Unknown]
  - No adverse event [Unknown]
  - Product physical consistency issue [Unknown]
